FAERS Safety Report 11708614 (Version 1)
Quarter: 2015Q4

REPORT INFORMATION
  Report Type: Spontaneous
  Country: US (occurrence: US)
  Receive Date: 20151104
  Receipt Date: 20151104
  Transmission Date: 20160304
  Serious: No
  Sender: FDA-Public Use
  Company Number: US-ELI_LILLY_AND_COMPANY-US201102005245

PATIENT
  Age: 67 Year
  Sex: Female

DRUGS (2)
  1. FORTEO [Suspect]
     Active Substance: TERIPARATIDE
     Dosage: 20 UG, DAILY (1/D)
     Route: 065
     Dates: end: 20110223
  2. FORTEO [Suspect]
     Active Substance: TERIPARATIDE
     Indication: OSTEOPOROSIS
     Dosage: 20 UG, DAILY (1/D)
     Route: 065
     Dates: start: 20110207

REACTIONS (12)
  - Painful defaecation [Unknown]
  - Sleep disorder due to a general medical condition [Unknown]
  - Growing pains [Recovered/Resolved]
  - Fatigue [Unknown]
  - Blood calcium increased [Recovering/Resolving]
  - Constipation [Unknown]
  - Bone pain [Recovered/Resolved]
  - Arthralgia [Unknown]
  - Functional gastrointestinal disorder [Unknown]
  - Asthenia [Unknown]
  - Pain in extremity [Recovered/Resolved]
  - Decreased activity [Unknown]

NARRATIVE: CASE EVENT DATE: 201102
